FAERS Safety Report 5236798-2 (Version None)
Quarter: 2007Q1

REPORT INFORMATION
  Report Type: 
  Country: None (occurrence: None)
  Receive Date: 20070213
  Receipt Date: 20070131
  Transmission Date: 20070707
  Serious: Yes (Other)
  Sender: FDA-Public Use
  Company Number: PHNU2007DE00729

PATIENT
  Sex: Female

DRUGS (3)
  1. STANGYL [Concomitant]
     Dates: end: 20060101
  2. CIPRAMIL [Concomitant]
  3. LEPONEX [Suspect]
     Dosage: 200 MG/DAY
     Route: 048
     Dates: start: 20061001

REACTIONS (1)
  - ELECTROCARDIOGRAM QT PROLONGED [None]
